FAERS Safety Report 11851837 (Version 1)
Quarter: 2015Q4

REPORT INFORMATION
  Report Type: Spontaneous
  Country: US (occurrence: US)
  Receive Date: 20151218
  Receipt Date: 20151218
  Transmission Date: 20160305
  Serious: Yes (Other)
  Sender: FDA-Public Use
  Company Number: US-BRISTOL-MYERS SQUIBB COMPANY-BMS-2015-087475

PATIENT
  Sex: Male

DRUGS (1)
  1. WARFARIN SODIUM. [Suspect]
     Active Substance: WARFARIN SODIUM
     Indication: EMBOLISM VENOUS
     Dosage: UNK, QD
     Route: 065

REACTIONS (5)
  - Carpal tunnel decompression [Recovered/Resolved]
  - Haematoma [Recovered/Resolved]
  - Carpal tunnel syndrome [Recovered/Resolved]
  - Haematoma evacuation [Recovered/Resolved]
  - International normalised ratio increased [Recovered/Resolved]
